FAERS Safety Report 11285580 (Version 1)
Quarter: 2015Q3

REPORT INFORMATION
  Report Type: Report from Study
  Country: BR (occurrence: BR)
  Receive Date: 20150720
  Receipt Date: 20150720
  Transmission Date: 20151125
  Serious: Yes (Life-Threatening, Hospitalization, Other)
  Sender: FDA-Public Use
  Company Number: PHHY2015BR080694

PATIENT
  Age: 22 Year
  Sex: Male
  Weight: 65 kg

DRUGS (3)
  1. ZOTEON PODHALER [Suspect]
     Active Substance: TOBRAMYCIN
     Indication: CYSTIC FIBROSIS
     Dosage: 2 DF, QD
     Route: 055
     Dates: start: 20150301
  2. TOBI [Suspect]
     Active Substance: TOBRAMYCIN
     Indication: CYSTIC FIBROSIS
     Dosage: 1 DF, QD
     Route: 055
     Dates: end: 201503
  3. ZOTEON PODHALER [Suspect]
     Active Substance: TOBRAMYCIN
     Dosage: 2 CAPSULES, DAILY (28 MG)
     Route: 065
     Dates: start: 201504

REACTIONS (7)
  - Pneumonia [Recovering/Resolving]
  - Productive cough [Unknown]
  - Tuberculosis [Recovered/Resolved]
  - Weight increased [Not Recovered/Not Resolved]
  - Fatigue [Unknown]
  - Catarrh [Recovering/Resolving]
  - Asthenia [Unknown]

NARRATIVE: CASE EVENT DATE: 201501
